FAERS Safety Report 7679861-9 (Version None)
Quarter: 2011Q3

REPORT INFORMATION
  Report Type: 
  Country: None (occurrence: None)
  Receive Date: 20110809
  Receipt Date: 20110803
  Transmission Date: 20111222
  Serious: Yes (Hospitalization)
  Sender: FDA-Public Use
  Company Number: TPA2011A04355

PATIENT
  Age: 76 Year
  Sex: Male

DRUGS (3)
  1. ACTOS [Suspect]
     Indication: TYPE 2 DIABETES MELLITUS
  2. AMARYL [Suspect]
     Indication: TYPE 2 DIABETES MELLITUS
     Dosage: 4 MG , 1 IN 1 D PER ORAL 4 MG, 2 IN 1 D, PER ORAL
     Route: 048
     Dates: end: 20110608
  3. JANUVIA [Suspect]

REACTIONS (1)
  - CORONARY ARTERY BYPASS [None]
